FAERS Safety Report 11043556 (Version 2)
Quarter: 2015Q3

REPORT INFORMATION
  Report Type: Report from Study
  Country: CA (occurrence: CA)
  Receive Date: 20150417
  Receipt Date: 20150722
  Transmission Date: 20151125
  Serious: Yes (Other)
  Sender: FDA-Public Use
  Company Number: CA-BAYER-2015-024694

PATIENT
  Age: 67 Year
  Sex: Female

DRUGS (5)
  1. MORPHINE [Suspect]
     Active Substance: MORPHINE
  2. COUMADIN [Interacting]
     Active Substance: WARFARIN SODIUM
  3. PHENOBARBITAL. [Concomitant]
     Active Substance: PHENOBARBITAL
  4. STIVARGA [Suspect]
     Active Substance: REGORAFENIB
     Indication: COLORECTAL CANCER METASTATIC
     Dosage: 160 MG, QD
     Route: 048
     Dates: start: 20150122, end: 201502
  5. STIVARGA [Suspect]
     Active Substance: REGORAFENIB
     Indication: COLORECTAL CANCER METASTATIC
     Dosage: 120 MG, QD
     Route: 048
     Dates: start: 201502, end: 20150717

REACTIONS (8)
  - Colorectal cancer metastatic [Not Recovered/Not Resolved]
  - Pain in extremity [Recovered/Resolved]
  - Contusion [None]
  - Arthralgia [None]
  - Peripheral swelling [Recovered/Resolved]
  - Skin discolouration [Recovered/Resolved]
  - Abdominal pain upper [Recovered/Resolved]
  - Gait disturbance [None]

NARRATIVE: CASE EVENT DATE: 2015
